FAERS Safety Report 18172919 (Version 1)
Quarter: 2020Q3

REPORT INFORMATION
  Report Type: Spontaneous
  Country: JP (occurrence: JP)
  Receive Date: 20200820
  Receipt Date: 20200820
  Transmission Date: 20201103
  Serious: Yes (Hospitalization, Other)
  Sender: FDA-Public Use
  Company Number: JP-ACCORD-178170

PATIENT
  Age: 72 Year
  Sex: Female

DRUGS (1)
  1. GEMCITABINE/GEMCITABINE HYDROCHLORIDE [Suspect]
     Active Substance: GEMCITABINE\GEMCITABINE HYDROCHLORIDE
     Indication: PANCREATIC CARCINOMA
     Dosage: ON DAYS 1, 8 AND 15 OF A 4?WEEK CYCLE, 1,000 MG/M2, ON DAYS 1, 8 AND 15 OF A 4?WEEK CYCLE

REACTIONS (2)
  - Recall phenomenon [Recovering/Resolving]
  - Gastroenteritis radiation [Recovering/Resolving]
